FAERS Safety Report 10611062 (Version 1)
Quarter: 2014Q4

REPORT INFORMATION
  Report Type: Spontaneous
  Country: IT (occurrence: IT)
  Receive Date: 20141126
  Receipt Date: 20141126
  Transmission Date: 20150529
  Serious: Yes (Hospitalization)
  Sender: FDA-Public Use
  Company Number: IT-GE HEALTHCARE MEDICAL DIAGNOSTICS-VISP-PR-1411S-0516

PATIENT
  Age: 35 Year
  Sex: Male

DRUGS (2)
  1. VISIPAQUE [Suspect]
     Active Substance: IODIXANOL
     Indication: LYMPHOMA
     Route: 042
     Dates: start: 20141117, end: 20141117
  2. VISIPAQUE [Suspect]
     Active Substance: IODIXANOL
     Indication: DIAGNOSTIC PROCEDURE

REACTIONS (3)
  - Choking sensation [Unknown]
  - Urticaria [Unknown]
  - Throat irritation [Unknown]

NARRATIVE: CASE EVENT DATE: 20141117
